FAERS Safety Report 7810417-0 (Version None)
Quarter: 2011Q4

REPORT INFORMATION
  Report Type: 
  Country: None (occurrence: None)
  Receive Date: 20111012
  Receipt Date: 20111003
  Transmission Date: 20120403
  Serious: Yes (Hospitalization, Disabling, Other)
  Sender: FDA-Public Use
  Company Number: US-MERCK-1105USA02747

PATIENT
  Age: 54 Year
  Sex: Female

DRUGS (31)
  1. FOSAMAX [Suspect]
     Indication: OSTEOPENIA
     Route: 048
     Dates: start: 19980101, end: 20101201
  2. FOSAMAX PLUS D [Suspect]
     Route: 048
     Dates: start: 20090101, end: 20110401
  3. ZETIA [Concomitant]
     Route: 048
  4. SINGULAIR [Concomitant]
     Route: 048
  5. DILANTIN [Concomitant]
     Route: 065
  6. POTASSIUM (UNSPECIFIED) [Concomitant]
     Route: 065
  7. ALBUTEROL [Concomitant]
     Route: 065
  8. CALCIUM (UNSPECIFIED) [Concomitant]
     Route: 065
  9. ATIVAN [Concomitant]
     Route: 065
  10. FOSAMAX [Suspect]
     Indication: OSTEOPOROSIS
     Route: 048
     Dates: start: 19980101, end: 20101201
  11. SPIRIVA [Concomitant]
     Route: 065
  12. ESTRATEST [Concomitant]
     Route: 065
  13. HORMONES (UNSPECIFIED) [Concomitant]
     Route: 065
  14. ALUPENT [Concomitant]
     Route: 065
  15. COUMADIN [Concomitant]
     Route: 065
  16. CORTICOSTEROIDS (UNSPECIFIED) [Concomitant]
     Route: 065
     Dates: start: 20060101
  17. [THERAPY UNSPECIFIED] [Concomitant]
     Indication: BLOOD CHOLESTEROL
     Route: 065
  18. FOLIC ACID [Concomitant]
     Route: 065
  19. ELAVIL [Concomitant]
     Route: 048
  20. THEO-DUR [Concomitant]
     Route: 065
  21. ZOCOR [Concomitant]
     Route: 048
  22. VICODIN [Concomitant]
     Route: 065
  23. MAGNESIUM (UNSPECIFIED) [Concomitant]
     Route: 065
  24. PREDNISONE [Concomitant]
     Route: 065
  25. FOSAMAX PLUS D [Suspect]
     Indication: OSTEOPOROSIS
     Route: 048
     Dates: start: 20090101, end: 20110401
  26. PROVERA [Concomitant]
     Route: 065
  27. SENOKOT [Concomitant]
     Route: 065
  28. THEOPHYLLINE [Concomitant]
     Route: 065
  29. VISTARIL [Concomitant]
     Route: 065
  30. POLY TUSSIN [Concomitant]
     Route: 065
  31. ADVAIR DISKUS 100/50 [Concomitant]
     Route: 065

REACTIONS (42)
  - FEMUR FRACTURE [None]
  - CORONARY ARTERY EMBOLISM [None]
  - DEPRESSION [None]
  - HYPERCAPNIA [None]
  - HYPERCALCAEMIA [None]
  - TACHYCARDIA [None]
  - SINUS DISORDER [None]
  - COUGH [None]
  - HYPERPARATHYROIDISM [None]
  - CAROTID ARTERIOSCLEROSIS [None]
  - HYPOMAGNESAEMIA [None]
  - HYPERLIPIDAEMIA [None]
  - GASTROINTESTINAL DISORDER [None]
  - MENTAL STATUS CHANGES [None]
  - CARDIAC DISORDER [None]
  - HYPOXIA [None]
  - CARDIAC MURMUR [None]
  - TRACHEOBRONCHITIS [None]
  - INSOMNIA [None]
  - DYSURIA [None]
  - RUPTURED CEREBRAL ANEURYSM [None]
  - HYSTERECTOMY [None]
  - ARTHRALGIA [None]
  - PELVIC PAIN [None]
  - PELVIC FRACTURE [None]
  - HYPERTENSION [None]
  - EMPHYSEMA [None]
  - AZOTAEMIA [None]
  - BRONCHITIS [None]
  - INJURY [None]
  - GRAND MAL CONVULSION [None]
  - CONVULSION [None]
  - RESPIRATORY FAILURE [None]
  - RENAL FAILURE ACUTE [None]
  - NEPHROSCLEROSIS [None]
  - RENAL FAILURE CHRONIC [None]
  - HYPOPHAGIA [None]
  - LOW TURNOVER OSTEOPATHY [None]
  - BONE DISORDER [None]
  - CHRONIC OBSTRUCTIVE PULMONARY DISEASE [None]
  - FALL [None]
  - PNEUMONIA [None]
